FAERS Safety Report 12674234 (Version 1)
Quarter: 2016Q3

REPORT INFORMATION
  Report Type: Spontaneous
  Country: CN (occurrence: CN)
  Receive Date: 20160822
  Receipt Date: 20160822
  Transmission Date: 20161109
  Serious: Yes (Hospitalization)
  Sender: FDA-Public Use
  Company Number: CN-IMPAX LABORATORIES, INC-2016-IPXL-00888

PATIENT
  Age: 48 Year
  Sex: Female

DRUGS (4)
  1. RIFAPENTINE [Concomitant]
     Active Substance: RIFAPENTINE
     Indication: BRUCELLOSIS
     Dosage: UNK
     Route: 065
     Dates: start: 2015
  2. DOXYCYCLINE. [Suspect]
     Active Substance: DOXYCYCLINE
     Indication: BRUCELLOSIS
     Dosage: UNK
     Route: 065
     Dates: start: 2015
  3. DOXYCYCLINE. [Suspect]
     Active Substance: DOXYCYCLINE
     Dosage: 100 MG, EVERY 12HR
     Route: 065
     Dates: start: 201510, end: 20151108
  4. RIFAMPICIN [Concomitant]
     Active Substance: RIFAMPIN
     Indication: BRUCELLOSIS
     Dosage: 900 MG, QD
     Route: 065
     Dates: start: 2015

REACTIONS (2)
  - Pyrexia [Recovered/Resolved]
  - Treatment failure [Unknown]

NARRATIVE: CASE EVENT DATE: 2015
